FAERS Safety Report 5116899-X (Version None)
Quarter: 2006Q3

REPORT INFORMATION
  Report Type: 
  Country: None (occurrence: None)
  Receive Date: 20060925
  Receipt Date: 20060913
  Transmission Date: 20061208
  Serious: Yes (Other)
  Sender: FDA-Public Use
  Company Number: 2006072857

PATIENT
  Age: 79 Year
  Sex: Male
  Weight: 81.6475 kg

DRUGS (6)
  1. ZOLOFT [Suspect]
     Indication: PSYCHOTIC DISORDER
     Dosage: 25 MG (50 MG, 1 IN 1 D), ORAL
     Route: 048
     Dates: start: 20060111
  2. ASPIRIN [Concomitant]
  3. EZETIMIBE (EZETIMIBE) [Concomitant]
  4. SIMVASTATIN [Concomitant]
  5. GLYBURIDE [Concomitant]
  6. CLONAZEPAM [Concomitant]

REACTIONS (6)
  - BALANCE DISORDER [None]
  - DIZZINESS [None]
  - INCORRECT DOSE ADMINISTERED [None]
  - SUBDURAL HAEMATOMA [None]
  - TINNITUS [None]
  - TREMOR [None]
